FAERS Safety Report 6029919-5 (Version None)
Quarter: 2009Q1

REPORT INFORMATION
  Report Type: 
  Country: None (occurrence: None)
  Receive Date: 20090107
  Receipt Date: 20090105
  Transmission Date: 20090719
  Serious: Yes (Death)
  Sender: FDA-Public Use
  Company Number: US-BRISTOL-MYERS SQUIBB COMPANY-14460679

PATIENT
  Age: 76 Year
  Sex: Male

DRUGS (5)
  1. METFORMIN HCL [Suspect]
  2. GLIBENCLAMIDE [Suspect]
     Dosage: FORMULATION - TABLET;NONPRESTAB
  3. SERTRALINE HCL [Suspect]
  4. TRAMADOL HCL [Suspect]
  5. L-DOPA [Suspect]

REACTIONS (1)
  - COMPLETED SUICIDE [None]
